FAERS Safety Report 12836263 (Version 1)
Quarter: 2016Q4

REPORT INFORMATION
  Report Type: Spontaneous
  Country: US (occurrence: US)
  Receive Date: 20161011
  Receipt Date: 20161011
  Transmission Date: 20170207
  Serious: Yes (Hospitalization)
  Sender: FDA-Public Use
  Company Number: None

PATIENT
  Age: 61 Year
  Sex: Female
  Weight: 59.42 kg

DRUGS (3)
  1. CRIZOTINIB (250 MG) PFIZER [Suspect]
     Active Substance: CRIZOTINIB
     Indication: BREAST CANCER METASTATIC
     Route: 048
     Dates: start: 20160831, end: 20160914
  2. PSYLLIUM HUSK [Concomitant]
     Active Substance: PSYLLIUM HUSK
  3. SUNITINIB (25 MG) PFIZER [Suspect]
     Active Substance: SUNITINIB
     Indication: BREAST CANCER METASTATIC
     Route: 048
     Dates: start: 20160831, end: 20160914

REACTIONS (2)
  - Cerebrovascular accident [None]
  - Acute kidney injury [None]

NARRATIVE: CASE EVENT DATE: 20160919
